FAERS Safety Report 4314337-8 (Version None)
Quarter: 2004Q1

REPORT INFORMATION
  Report Type: 
  Country: None (occurrence: None)
  Receive Date: 20040308
  Receipt Date: 20040223
  Transmission Date: 20041129
  Serious: Yes (Death)
  Sender: FDA-Public Use
  Company Number: USA-2003-0011379

PATIENT
  Age: 39 Year
  Sex: Female
  Weight: 66.7 kg

DRUGS (4)
  1. OXYCODONE HCL [Suspect]
  2. HYDROCODONE BITARTRATE (SIMILR TO IND 59,175) (HYDROCODONE BITARTRATE) [Suspect]
  3. ETHANOL (ETHANOL) [Suspect]
  4. NICOTINE [Suspect]

REACTIONS (13)
  - AORTIC ATHEROSCLEROSIS [None]
  - ARTERIAL INJURY [None]
  - BREAST FIBROSIS [None]
  - CONTUSION [None]
  - CORONARY ARTERY ATHEROSCLEROSIS [None]
  - EXCORIATION [None]
  - EXSANGUINATION [None]
  - INJURY [None]
  - OVARIAN ENLARGEMENT [None]
  - PNEUMONITIS [None]
  - PULMONARY OEDEMA [None]
  - SKIN SWELLING [None]
  - TENDON DISORDER [None]
